FAERS Safety Report 10220199 (Version 1)
Quarter: 2014Q2

REPORT INFORMATION
  Report Type: Spontaneous
  Country: PT (occurrence: PT)
  Receive Date: 20140605
  Receipt Date: 20140605
  Transmission Date: 20141212
  Serious: Yes (Other)
  Sender: FDA-Public Use
  Company Number: PT-BRISTOL-MYERS SQUIBB COMPANY-20847505

PATIENT
  Sex: Female

DRUGS (1)
  1. IPILIMUMAB [Suspect]

REACTIONS (2)
  - Hypothermia [Unknown]
  - Diarrhoea [Recovered/Resolved]
